FAERS Safety Report 4880104-X (Version None)
Quarter: 2005Q4

REPORT INFORMATION
  Report Type: 
  Country: None (occurrence: None)
  Receive Date: 20051223
  Receipt Date: 20050919
  Transmission Date: 20060501
  Serious: Yes (Hospitalization)
  Sender: FDA-Public Use
  Company Number: 05P-163-0311286-00

PATIENT
  Age: 72 Year
  Sex: Female
  Weight: 38.5557 kg

DRUGS (11)
  1. HUMIRA [Suspect]
     Indication: RHEUMATOID ARTHRITIS
     Dosage: 40 MG, 1 IN 2 WK, SUBCUTANEOUS
     Route: 058
     Dates: start: 20030101, end: 20050801
  2. MELOXICAM [Concomitant]
  3. PREDNISONE [Concomitant]
  4. ASPIRIN [Concomitant]
  5. BENACAR [Concomitant]
  6. ATENOLOL [Concomitant]
  7. ESOMEPRAZOLE [Concomitant]
  8. LEVOTHYROXINE SODIUM [Concomitant]
  9. FUROSEMIDE [Concomitant]
  10. PROPACET 100 [Concomitant]
  11. PARACETAMOL [Concomitant]

REACTIONS (3)
  - DECUBITUS ULCER [None]
  - KIDNEY INFECTION [None]
  - RESPIRATORY TRACT INFECTION [None]
